FAERS Safety Report 16142251 (Version 1)
Quarter: 2019Q2

REPORT INFORMATION
  Report Type: Spontaneous
  Country: US (occurrence: US)
  Receive Date: 20190401
  Receipt Date: 20190401
  Transmission Date: 20190711
  Serious: No
  Sender: FDA-Public Use
  Company Number: US-SA-2019SA085572

PATIENT

DRUGS (1)
  1. XYZAL ALLERGY 24HR [Suspect]
     Active Substance: LEVOCETIRIZINE DIHYDROCHLORIDE
     Indication: HEADACHE
     Dosage: UNK UNK, UNK
     Route: 065

REACTIONS (9)
  - Decreased appetite [Unknown]
  - Restlessness [Unknown]
  - Chest discomfort [Unknown]
  - Dizziness [Unknown]
  - Pain [Unknown]
  - Insomnia [Unknown]
  - Chest pain [Unknown]
  - Agitation [Unknown]
  - Back pain [Unknown]
